FAERS Safety Report 7138819-9 (Version None)
Quarter: 2010Q4

REPORT INFORMATION
  Report Type: 
  Country: None (occurrence: None)
  Receive Date: 20101206
  Receipt Date: 20101123
  Transmission Date: 20110411
  Serious: Yes (Other)
  Sender: FDA-Public Use
  Company Number: US-ELI_LILLY_AND_COMPANY-US201011006599

PATIENT
  Sex: Male

DRUGS (6)
  1. HUMALOG [Suspect]
     Dosage: 80 U, EACH MORNING
     Dates: start: 19760101
  2. HUMALOG [Suspect]
     Dosage: 70 U, EACH EVENING
     Dates: start: 19760101
  3. HUMALOG [Suspect]
     Dosage: 140 U, DAILY (1/D)
     Dates: start: 19760101
  4. NORVASC [Concomitant]
     Indication: HYPERTENSION
     Dosage: 10 MG, UNK
  5. QUINAPRIL [Concomitant]
     Indication: HYPERTENSION
     Dosage: 20 MG, UNK
  6. METOPROLOL [Concomitant]
     Indication: HYPERTENSION
     Dosage: 100 MG, UNK

REACTIONS (5)
  - BLOOD GLUCOSE INCREASED [None]
  - HYPERTENSION [None]
  - PROTEINURIA [None]
  - RENAL FAILURE [None]
  - WEIGHT INCREASED [None]
